FAERS Safety Report 7291696-8 (Version None)
Quarter: 2011Q1

REPORT INFORMATION
  Report Type: 
  Country: None (occurrence: None)
  Receive Date: 20110210
  Receipt Date: 20110210
  Transmission Date: 20110831
  Serious: No
  Sender: FDA-Public Use
  Company Number: None

PATIENT
  Age: 50 Year
  Weight: 120.2032 kg

DRUGS (10)
  1. FISH OIL [Concomitant]
  2. HUMILIN R [Concomitant]
  3. JANUMET [Concomitant]
  4. NIACIN [Concomitant]
  5. GLIPIZIDE [Concomitant]
  6. FLAXSEED OIL [Concomitant]
  7. LISINOPRIL [Concomitant]
  8. TRILIPIX [Suspect]
     Indication: LIPIDS INCREASED
     Dosage: 135 MG ONE PER DAY PO
     Route: 048
     Dates: start: 20101010, end: 20110209
  9. LANTUS [Concomitant]
  10. POTASSIUM [Concomitant]

REACTIONS (2)
  - MUSCLE SPASMS [None]
  - BLOOD CREATINE PHOSPHOKINASE INCREASED [None]
